FAERS Safety Report 9633749 (Version 1)
Quarter: 2013Q4

REPORT INFORMATION
  Report Type: Spontaneous
  Country: US (occurrence: US)
  Receive Date: 20131021
  Receipt Date: 20131021
  Transmission Date: 20140711
  Serious: No
  Sender: FDA-Public Use
  Company Number: US-PFIZER INC-2013296799

PATIENT
  Age: 58 Year
  Sex: Female
  Weight: 73 kg

DRUGS (5)
  1. XELJANZ [Suspect]
     Dosage: 5 MG, 2X/DAY
     Route: 048
  2. CENTRUM SILV ADULT 50 [Concomitant]
     Dosage: UNK
  3. ASPIRIN [Concomitant]
     Dosage: 325 MG, UNK
  4. VITAMIN C CHW [Concomitant]
     Dosage: 500 MG, UNK
  5. CALCIUM + D [Concomitant]
     Dosage: UNK

REACTIONS (2)
  - Pain [Unknown]
  - Feeling abnormal [Unknown]
